FAERS Safety Report 13782333 (Version 1)
Quarter: 2017Q3

REPORT INFORMATION
  Report Type: Spontaneous
  Country: GB (occurrence: GB)
  Receive Date: 20170724
  Receipt Date: 20170724
  Transmission Date: 20171127
  Serious: Yes (Other)
  Sender: FDA-Public Use
  Company Number: GB-SA-2017SA134241

PATIENT
  Age: 55 Year
  Sex: Male
  Weight: 81 kg

DRUGS (11)
  1. SALBUTAMOL [Concomitant]
     Active Substance: ALBUTEROL
     Dosage: UP TO FOUR TIMES A DAY.
     Route: 055
     Dates: start: 20170202
  2. ATENOLOL. [Concomitant]
     Active Substance: ATENOLOL
     Dosage: EACH MORNING.
     Route: 065
     Dates: start: 20170202
  3. TRAMADOL. [Concomitant]
     Active Substance: TRAMADOL
     Dosage: 1-2 EVERY 4-6 HOURS MAXIMUM 8 IN 24 HOURS.
     Route: 065
     Dates: start: 20170504, end: 20170505
  4. ASPIRIN. [Concomitant]
     Active Substance: ASPIRIN
     Route: 065
     Dates: start: 20170202
  5. ATORVASTATIN [Concomitant]
     Active Substance: ATORVASTATIN
     Indication: HYPERCHOLESTEROLAEMIA
     Route: 065
     Dates: start: 20170202
  6. LANSOPRAZOLE. [Concomitant]
     Active Substance: LANSOPRAZOLE
     Route: 065
     Dates: start: 20170202
  7. CLENIL MODULITE [Concomitant]
     Active Substance: BECLOMETHASONE DIPROPIONATE
     Route: 065
     Dates: start: 20170202
  8. CODEINE PHOSPHATE [Concomitant]
     Active Substance: CODEINE PHOSPHATE
     Dosage: 1-2 FOUR TIMES A DAY.
     Route: 065
     Dates: start: 20170504, end: 20170505
  9. METFORMIN [Concomitant]
     Active Substance: METFORMIN HYDROCHLORIDE
     Dosage: TAKE TWO EACH MORNING AND ONE TO BE...
     Route: 065
     Dates: start: 20170202
  10. GLIMEPIRIDE. [Suspect]
     Active Substance: GLIMEPIRIDE
     Route: 048
     Dates: start: 20170202
  11. SILDENAFIL. [Concomitant]
     Active Substance: SILDENAFIL
     Dosage: USE AS DIRECTED.
     Route: 065
     Dates: start: 20170202

REACTIONS (3)
  - Pulmonary fibrosis [Recovering/Resolving]
  - Cough [Recovering/Resolving]
  - Dyspnoea [Recovering/Resolving]

NARRATIVE: CASE EVENT DATE: 20170711
